FAERS Safety Report 12622621 (Version 1)
Quarter: 2016Q3

REPORT INFORMATION
  Report Type: Spontaneous
  Country: FR (occurrence: FR)
  Receive Date: 20160804
  Receipt Date: 20160804
  Transmission Date: 20161109
  Serious: Yes (Hospitalization)
  Sender: FDA-Public Use
  Company Number: FR-009507513-1607FRA012283

PATIENT
  Age: 51 Year
  Sex: Female

DRUGS (8)
  1. BEVITINE [Concomitant]
     Active Substance: THIAMINE
     Dosage: UNK
  2. NORSET [Suspect]
     Active Substance: MIRTAZAPINE
     Dosage: 60 TABLETS
     Route: 048
     Dates: start: 20160628, end: 20160628
  3. STAGID [Concomitant]
     Active Substance: METFORMIN PAMOATE
     Dosage: UNK
  4. AMLODIPINE [Concomitant]
     Active Substance: AMLODIPINE BESYLATE
  5. IXPRIM (BINEDALINE HYDROCHLORIDE) [Concomitant]
     Active Substance: BINEDALINE HYDROCHLORIDE
     Dosage: UNK
  6. TRAMADOL HYDROCHLORIDE. [Concomitant]
     Active Substance: TRAMADOL HYDROCHLORIDE
     Dosage: UNK
  7. KENZEN [Suspect]
     Active Substance: CANDESARTAN
     Dosage: 30 DF
     Route: 048
  8. CRESTOR [Concomitant]
     Active Substance: ROSUVASTATIN CALCIUM
     Dosage: UNK

REACTIONS (2)
  - Tachycardia [Recovered/Resolved]
  - Prerenal failure [Recovered/Resolved]

NARRATIVE: CASE EVENT DATE: 20160628
